FAERS Safety Report 15181135 (Version 1)
Quarter: 2018Q3

REPORT INFORMATION
  Report Type: Spontaneous
  Country: US (occurrence: US)
  Receive Date: 20180723
  Receipt Date: 20180723
  Transmission Date: 20181010
  Serious: Yes (Other)
  Sender: FDA-Public Use
  Company Number: US-NOVOPROD-610991

PATIENT
  Age: 36 Year
  Sex: Female

DRUGS (1)
  1. ESTRADIOL. [Suspect]
     Active Substance: ESTRADIOL
     Indication: IN VITRO FERTILISATION
     Dosage: 2 MG, BID
     Route: 048

REACTIONS (6)
  - Condition aggravated [Recovered/Resolved]
  - Off label use [Unknown]
  - Abortion induced [Recovered/Resolved]
  - Hypertriglyceridaemia [Recovered/Resolved]
  - Xanthoma [Recovered/Resolved]
  - Exposure during pregnancy [Recovered/Resolved]
